FAERS Safety Report 4863884-9 (Version None)
Quarter: 2005Q4

REPORT INFORMATION
  Report Type: 
  Country: None (occurrence: None)
  Receive Date: 20051222
  Receipt Date: 20051213
  Transmission Date: 20060501
  Serious: Yes (Other)
  Sender: FDA-Public Use
  Company Number: SE-BRISTOL-MYERS SQUIBB COMPANY-13217575

PATIENT
  Age: 41 Year
  Sex: Female

DRUGS (15)
  1. TAXOL [Suspect]
     Indication: CERVIX CARCINOMA
     Dates: start: 20051209
  2. HYDROMORPHONE [Concomitant]
  3. ACTRAPID [Concomitant]
  4. FUROSEMIDE [Concomitant]
  5. MERONEM [Concomitant]
  6. FRAGMIN [Concomitant]
  7. PALLADON [Concomitant]
  8. CAFFEINE [Concomitant]
  9. VOLTAREN [Concomitant]
  10. PROGYNON [Concomitant]
  11. NEXIUM [Concomitant]
  12. ALVEDON [Concomitant]
  13. LAXOBERAL [Concomitant]
  14. DUROFERON [Concomitant]
  15. STESOLID [Concomitant]

REACTIONS (1)
  - HEMIPARESIS [None]
